FAERS Safety Report 5720088-5 (Version None)
Quarter: 2008Q2

REPORT INFORMATION
  Report Type: 
  Country: None (occurrence: None)
  Receive Date: 20080428
  Receipt Date: 20080424
  Transmission Date: 20081010
  Serious: Yes (Hospitalization)
  Sender: FDA-Public Use
  Company Number: DEWYE824411JUN07

PATIENT
  Sex: Male
  Weight: 74 kg

DRUGS (3)
  1. RAPAMUNE [Suspect]
     Indication: PROPHYLAXIS AGAINST TRANSPLANT REJECTION
     Route: 048
     Dates: start: 20061207, end: 20070220
  2. RAPAMUNE [Suspect]
     Route: 048
     Dates: start: 20070221, end: 20070309
  3. MYCOPHENOLATE MOFETIL [Concomitant]
     Indication: PROPHYLAXIS AGAINST TRANSPLANT REJECTION
     Route: 048
     Dates: start: 20061123, end: 20070320

REACTIONS (3)
  - CONDITION AGGRAVATED [None]
  - IGA NEPHROPATHY [None]
  - NEPHROSCLEROSIS [None]
